FAERS Safety Report 4936450-4 (Version None)
Quarter: 2006Q1

REPORT INFORMATION
  Report Type: 
  Country: None (occurrence: None)
  Receive Date: 20060307
  Receipt Date: 20060301
  Transmission Date: 20060701
  Serious: Yes (Other)
  Sender: FDA-Public Use
  Company Number: GB-JNJFOC-20060301160

PATIENT
  Sex: Male
  Weight: 97 kg

DRUGS (4)
  1. REMICADE [Suspect]
     Route: 042
  2. METHOTREXATE [Concomitant]
  3. FOLIC ACID [Concomitant]
  4. OMEPRAZOLE [Concomitant]

REACTIONS (1)
  - BASAL CELL CARCINOMA [None]
